FAERS Safety Report 4317384-5 (Version None)
Quarter: 2004Q1

REPORT INFORMATION
  Report Type: 
  Country: None (occurrence: None)
  Receive Date: 20040312
  Receipt Date: 20040225
  Transmission Date: 20041129
  Serious: Yes (Hospitalization)
  Sender: FDA-Public Use
  Company Number: 200401496

PATIENT
  Sex: Female

DRUGS (10)
  1. BOTOX [Suspect]
     Indication: BLEPHAROSPASM
  2. NITOLINEGUAL [Concomitant]
  3. ZOCOR [Concomitant]
  4. IMDUR [Concomitant]
  5. SELO-ZOK [Concomitant]
  6. ALBYL-E [Concomitant]
  7. TRIATEC [Concomitant]
  8. CARDIZEM [Concomitant]
  9. DIURAL [Concomitant]
  10. NITRODERM [Concomitant]

REACTIONS (10)
  - CARDIAC DISORDER [None]
  - CHILLS [None]
  - DRUG INEFFECTIVE [None]
  - FACIAL PALSY [None]
  - FEELING ABNORMAL [None]
  - GASTROINTESTINAL DISORDER [None]
  - HEADACHE [None]
  - NAUSEA [None]
  - SPEECH DISORDER [None]
  - TREMOR [None]
